FAERS Safety Report 8217806-3 (Version None)
Quarter: 2012Q1

REPORT INFORMATION
  Report Type: 
  Country: None (occurrence: None)
  Receive Date: 20120319
  Receipt Date: 20120308
  Transmission Date: 20120608
  Serious: Yes (Other)
  Sender: FDA-Public Use
  Company Number: CA-JNJFOC-20120304360

PATIENT
  Sex: Male
  Weight: 101 kg

DRUGS (11)
  1. REMICADE [Suspect]
     Indication: ANKYLOSING SPONDYLITIS
     Route: 042
     Dates: start: 20050928
  2. SULINDAC [Concomitant]
  3. METFORMIN HYDROCHLORIDE [Concomitant]
  4. FENTANYL [Concomitant]
  5. METHOTREXATE [Concomitant]
  6. TESTIM [Concomitant]
  7. EFFEXOR [Concomitant]
  8. ACCUPRIL [Concomitant]
  9. ACTOS [Concomitant]
  10. EZETIMIBE [Concomitant]
  11. FOLIC ACID [Concomitant]

REACTIONS (1)
  - DIABETIC FOOT [None]
